FAERS Safety Report 17661045 (Version 1)
Quarter: 2020Q2

REPORT INFORMATION
  Report Type: Spontaneous
  Country: US (occurrence: US)
  Receive Date: 20200411
  Receipt Date: 20200411
  Transmission Date: 20200713
  Serious: No
  Sender: FDA-Public Use
  Company Number: None

PATIENT
  Age: 22 Year
  Sex: Female
  Weight: 74.25 kg

DRUGS (1)
  1. ELURYNG [Suspect]
     Active Substance: ETHINYL ESTRADIOL\ETONOGESTREL
     Indication: CONTRACEPTION
     Dates: start: 20200106, end: 20200228

REACTIONS (7)
  - Libido decreased [None]
  - Product substitution issue [None]
  - Fatigue [None]
  - Somnolence [None]
  - Feeling abnormal [None]
  - Device dislocation [None]
  - Urinary tract infection [None]

NARRATIVE: CASE EVENT DATE: 20200210
